FAERS Safety Report 8599422-7 (Version None)
Quarter: 2012Q3

REPORT INFORMATION
  Report Type: 
  Country: None (occurrence: None)
  Receive Date: 20120816
  Receipt Date: 20120807
  Transmission Date: 20120928
  Serious: Yes (Hospitalization)
  Sender: FDA-Public Use
  Company Number: IT-ABBOTT-12P-083-0965697-00

PATIENT
  Sex: Male

DRUGS (3)
  1. DEPAKENE [Suspect]
     Indication: PRODUCT USED FOR UNKNOWN INDICATION
     Dosage: 1000 MG DAILY
     Route: 048
     Dates: start: 20110628, end: 20120627
  2. DELORAZEPAM (EN) [Suspect]
     Indication: PRODUCT USED FOR UNKNOWN INDICATION
     Dosage: 30 DROP(S) ; DAILY
     Route: 048
     Dates: start: 20110628, end: 20120627
  3. TEGRETOL [Suspect]
     Indication: PRODUCT USED FOR UNKNOWN INDICATION
     Dosage: 800 MILLIGRAM(S) DAILY
     Route: 048
     Dates: start: 20110628, end: 20120627

REACTIONS (3)
  - ASTHENIA [None]
  - HYPERSOMNIA [None]
  - BALANCE DISORDER [None]
